FAERS Safety Report 11680601 (Version 2)
Quarter: 2015Q4

REPORT INFORMATION
  Report Type: Spontaneous
  Country: US (occurrence: US)
  Receive Date: 20151027
  Receipt Date: 20151104
  Transmission Date: 20160304
  Serious: No
  Sender: FDA-Public Use
  Company Number: US-ELI_LILLY_AND_COMPANY-US201004007977

PATIENT
  Sex: Female

DRUGS (6)
  1. FORTEO [Suspect]
     Active Substance: TERIPARATIDE
     Indication: OSTEOPOROSIS
     Dosage: 20 UG, DAILY (1/D)
     Route: 065
     Dates: start: 20090915
  2. FORTEO [Suspect]
     Active Substance: TERIPARATIDE
     Dosage: 20 UG, DAILY (1/D)
     Route: 065
  3. FORTEO [Suspect]
     Active Substance: TERIPARATIDE
     Dosage: 20 UG, DAILY (1/D)
     Route: 065
  4. FORTEO [Suspect]
     Active Substance: TERIPARATIDE
     Dosage: 20 UG, DAILY (1/D)
     Route: 065
  5. PREDNISONE. [Concomitant]
     Active Substance: PREDNISONE
     Dosage: 20 MG, UNK
     Route: 065
  6. PREDNISONE. [Concomitant]
     Active Substance: PREDNISONE
     Indication: ASTHMA
     Dosage: 20 MG, BID
     Route: 065

REACTIONS (24)
  - Corneal dystrophy [Unknown]
  - Abdominal discomfort [Unknown]
  - Abdominal pain upper [Unknown]
  - Oropharyngeal candidiasis [Unknown]
  - Asthma [Unknown]
  - Diplopia [Unknown]
  - Gastrooesophageal reflux disease [Unknown]
  - Contusion [Unknown]
  - Salt craving [Unknown]
  - Adrenal disorder [Not Recovered/Not Resolved]
  - Vision blurred [Unknown]
  - Menopause [Unknown]
  - Throat tightness [Unknown]
  - Night sweats [Unknown]
  - Hypersensitivity [Unknown]
  - Adrenal insufficiency [Unknown]
  - Malaise [Unknown]
  - Injection site pain [Unknown]
  - Injection site irritation [Unknown]
  - Burning sensation [Unknown]
  - Sensation of foreign body [Unknown]
  - Corneal disorder [Unknown]
  - Sleep disorder [Unknown]
  - Injection site bruising [Unknown]
